FAERS Safety Report 6312168-0 (Version None)
Quarter: 2009Q3

REPORT INFORMATION
  Report Type: 
  Country: None (occurrence: None)
  Receive Date: 20090813
  Receipt Date: 20090813
  Transmission Date: 20100115
  Serious: Yes (Other)
  Sender: FDA-Public Use
  Company Number: None

PATIENT
  Sex: Male
  Weight: 92.9874 kg

DRUGS (1)
  1. FLUOROURACIL [Suspect]
     Indication: COLON CANCER
     Dosage: 5FU 300MG OVER 46 HOURS EVER INTRAVENOUS
     Route: 042
     Dates: start: 20090724, end: 20090726

REACTIONS (2)
  - DRUG DELIVERY SYSTEM MALFUNCTION [None]
  - UNDERDOSE [None]
